FAERS Safety Report 8609788-7 (Version None)
Quarter: 2012Q3

REPORT INFORMATION
  Report Type: 
  Country: None (occurrence: None)
  Receive Date: 20120821
  Receipt Date: 20120813
  Transmission Date: 20120928
  Serious: Yes (Other)
  Sender: FDA-Public Use
  Company Number: CHPA2012US018090

PATIENT
  Age: 85 Year
  Sex: Female

DRUGS (2)
  1. EXCEDRIN EXTRA STRENGTH CAPLETS [Suspect]
     Dosage: 2 TABLETS DAILY
     Route: 048
  2. SYNTHROID [Concomitant]
     Indication: THYROID DISORDER

REACTIONS (5)
  - THERAPEUTIC RESPONSE UNEXPECTED [None]
  - DRUG DEPENDENCE [None]
  - OFF LABEL USE [None]
  - INCORRECT DRUG ADMINISTRATION DURATION [None]
  - DISEASE RECURRENCE [None]
